FAERS Safety Report 21207555 (Version 1)
Quarter: 2022Q3

REPORT INFORMATION
  Report Type: Spontaneous
  Country: US (occurrence: US)
  Receive Date: 20220812
  Receipt Date: 20220812
  Transmission Date: 20221027
  Serious: No
  Sender: FDA-Public Use
  Company Number: US-SA-SAC20220808000321

PATIENT
  Sex: Female

DRUGS (21)
  1. DUPIXENT [Suspect]
     Active Substance: DUPILUMAB
     Indication: Asthma
     Dosage: 300 MG, QOW
     Route: 058
     Dates: start: 20220512, end: 2022
  2. HYDROCODONE [Concomitant]
     Active Substance: HYDROCODONE
     Dosage: 10MG
  3. ACETAMINOPHEN [Concomitant]
     Active Substance: ACETAMINOPHEN
     Dosage: 10MG
  4. CYCLOBENZAPRINE [Concomitant]
     Active Substance: CYCLOBENZAPRINE
     Dosage: 10MG
  5. LIDOCAINE [Concomitant]
     Active Substance: LIDOCAINE
     Dosage: 50220MG
  6. BUPIVACAINE [Concomitant]
     Active Substance: BUPIVACAINE
     Dosage: 50220MG
  7. ZINC [Concomitant]
     Active Substance: ZINC
     Dosage: 50220MG
  8. VITAMIN C [Concomitant]
     Active Substance: ASCORBIC ACID
     Dosage: 50220MG
  9. VITAMIN B12 [Concomitant]
     Active Substance: CYANOCOBALAMIN
     Dosage: UNK
  10. CHOLECALCIFEROL [Concomitant]
     Active Substance: CHOLECALCIFEROL
     Dosage: 250250MG
  11. GLUCOSAMINE [Concomitant]
     Active Substance: GLUCOSAMINE
     Dosage: 59599MG
  12. POTASSIUM [Concomitant]
     Active Substance: POTASSIUM
     Dosage: 250250MG
  13. APPLE CIDER VINEGAR [Concomitant]
     Active Substance: APPLE CIDER VINEGAR
     Dosage: 400MG
  14. IRON [Concomitant]
     Active Substance: IRON
     Dosage: 10651MG
  15. ROBAXIN [Concomitant]
     Active Substance: METHOCARBAMOL
     Dosage: 10651MG
  16. PROVENTIL HFA [SALBUTAMOL] [Concomitant]
     Dosage: 100MG
  17. TRELEGY ELLIPTA [Concomitant]
     Active Substance: FLUTICASONE FUROATE\UMECLIDINIUM BROMIDE\VILANTEROL TRIFENATATE
     Dosage: UNK
  18. ADDERALL [Concomitant]
     Active Substance: AMPHETAMINE ASPARTATE\AMPHETAMINE SULFATE\DEXTROAMPHETAMINE SACCHARATE\DEXTROAMPHETAMINE SULFATE
     Dosage: 150MG
  19. LYRICA [Concomitant]
     Active Substance: PREGABALIN
     Dosage: 20MG
  20. CITALOPRAM [Concomitant]
     Active Substance: CITALOPRAM HYDROBROMIDE
     Dosage: 40MG
  21. SYNTHROID [Concomitant]
     Active Substance: LEVOTHYROXINE SODIUM
     Dosage: 40MG

REACTIONS (1)
  - Asthma [Unknown]

NARRATIVE: CASE EVENT DATE: 20220101
